FAERS Safety Report 10248309 (Version 1)
Quarter: 2014Q2

REPORT INFORMATION
  Report Type: Spontaneous
  Country: US (occurrence: US)
  Receive Date: 20140620
  Receipt Date: 20140620
  Transmission Date: 20141212
  Serious: Yes (Hospitalization, Other)
  Sender: FDA-Public Use
  Company Number: US-AMGEN INC.-USASP2014045654

PATIENT
  Age: 82 Year
  Sex: Female

DRUGS (4)
  1. ENBREL [Suspect]
     Indication: RHEUMATOID ARTHRITIS
     Dosage: 50 MG, QWK
     Route: 065
     Dates: start: 20070102, end: 20140214
  2. LOVENOX [Concomitant]
     Dosage: UNK
  3. WARFARIN [Concomitant]
     Dosage: UNK
  4. PREDNISONE [Concomitant]
     Dosage: UNK

REACTIONS (14)
  - Thrombosis [Not Recovered/Not Resolved]
  - Spinal fracture [Not Recovered/Not Resolved]
  - Peripheral swelling [Not Recovered/Not Resolved]
  - Anticoagulation drug level abnormal [Recovered/Resolved]
  - Respiratory tract infection [Recovered/Resolved]
  - Skin discolouration [Recovered/Resolved]
  - Back pain [Recovered/Resolved]
  - Arthralgia [Not Recovered/Not Resolved]
  - Fall [Recovered/Resolved]
  - Gait disturbance [Not Recovered/Not Resolved]
  - Bone disorder [Not Recovered/Not Resolved]
  - Pain [Not Recovered/Not Resolved]
  - Mobility decreased [Not Recovered/Not Resolved]
  - Productive cough [Not Recovered/Not Resolved]
